FAERS Safety Report 8545387-3 (Version None)
Quarter: 2012Q3

REPORT INFORMATION
  Report Type: 
  Country: None (occurrence: None)
  Receive Date: 20120727
  Receipt Date: 20120719
  Transmission Date: 20120928
  Serious: Yes (Other)
  Sender: FDA-Public Use
  Company Number: DE-ELI_LILLY_AND_COMPANY-DE201207006197

PATIENT
  Sex: Female

DRUGS (9)
  1. FORTEO [Suspect]
     Indication: OSTEOPOROSIS
     Dosage: UNK, QD
     Route: 058
     Dates: start: 20111110, end: 20120604
  2. FORTEO [Suspect]
     Dosage: UNK, QD
     Route: 058
     Dates: end: 20120714
  3. DEKRISTOL [Concomitant]
     Dosage: 200000 IU, 3/W
  4. CORTISONE ACETATE [Concomitant]
     Dosage: 2.5 MG, QOD
  5. FLECAINID ALPHARMA [Concomitant]
     Dosage: UNK, BID
  6. ESOMEPRAZOL                        /01479301/ [Concomitant]
  7. FUROSEMID [Concomitant]
     Dosage: UNK, BID
  8. ISOPTIN [Concomitant]
     Dosage: UNK, BID
  9. ALDACTONE [Concomitant]
     Dosage: UNK, QD

REACTIONS (6)
  - HEART RATE INCREASED [None]
  - SENSATION OF PRESSURE [None]
  - CARDIAC DISORDER [None]
  - PALPITATIONS [None]
  - PULMONARY ARTERIAL PRESSURE INCREASED [None]
  - ARRHYTHMIA [None]
